FAERS Safety Report 5794208-0 (Version None)
Quarter: 2008Q2

REPORT INFORMATION
  Report Type: 
  Country: None (occurrence: None)
  Receive Date: 20080627
  Receipt Date: 20080619
  Transmission Date: 20081010
  Serious: Yes (Hospitalization, Other)
  Sender: FDA-Public Use
  Company Number: JP-PFIZER INC-2008051416

PATIENT
  Age: 52 Year
  Sex: Female

DRUGS (6)
  1. NORVASC [Suspect]
     Route: 048
  2. DEPAKENE [Concomitant]
     Route: 048
  3. TOLEDOMIN [Concomitant]
     Route: 048
  4. ROHYPNOL [Concomitant]
     Route: 048
  5. LEVOTOMIN [Concomitant]
     Route: 048
  6. LENDORMIN [Concomitant]
     Route: 048

REACTIONS (5)
  - BLOOD PRESSURE DECREASED [None]
  - DEPRESSED LEVEL OF CONSCIOUSNESS [None]
  - INTENTIONAL OVERDOSE [None]
  - SUICIDE ATTEMPT [None]
  - URINE OUTPUT DECREASED [None]
